FAERS Safety Report 9254488 (Version 1)
Quarter: 2013Q2

REPORT INFORMATION
  Report Type: Spontaneous
  Country: US (occurrence: None)
  Receive Date: 20130422
  Receipt Date: 20130422
  Transmission Date: 20140414
  Serious: Yes (Other)
  Sender: FDA-Public Use
  Company Number: None

PATIENT
  Age: 92 Year
  Sex: Female
  Weight: 54.4 kg

DRUGS (1)
  1. IBUPROFEN [Suspect]
     Route: 048
     Dates: start: 20130413, end: 20130415

REACTIONS (1)
  - Renal failure acute [None]
